FAERS Safety Report 24874948 (Version 1)
Quarter: 2025Q1

REPORT INFORMATION
  Report Type: Spontaneous
  Country: US (occurrence: US)
  Receive Date: 20250122
  Receipt Date: 20250122
  Transmission Date: 20250409
  Serious: No
  Sender: SANOFI AVENTIS
  Company Number: US-SA-2025SA018445

PATIENT
  Sex: Male
  Weight: 66.36 kg

DRUGS (8)
  1. DUPIXENT [Suspect]
     Active Substance: DUPILUMAB
     Dosage: 300 MG, QOW
     Route: 058
  2. ANASTROZOLE [Concomitant]
     Active Substance: ANASTROZOLE
  3. PREDNISONE [Concomitant]
     Active Substance: PREDNISONE
  4. FEBUXOSTAT [Concomitant]
     Active Substance: FEBUXOSTAT
  5. HALOBETASOL PROPIONATE [Concomitant]
     Active Substance: HALOBETASOL PROPIONATE
  6. TACROLIMUS [Concomitant]
     Active Substance: TACROLIMUS
  7. CORTICOTROPIN [Concomitant]
     Active Substance: CORTICOTROPIN
  8. LISINOPRIL [Concomitant]
     Active Substance: LISINOPRIL

REACTIONS (1)
  - Injection site pain [Unknown]
